FAERS Safety Report 8832962 (Version 1)
Quarter: 2012Q4

REPORT INFORMATION
  Report Type: 
  Country: US (occurrence: US)
  Receive Date: 20121010
  Receipt Date: 20121010
  Transmission Date: 20130627
  Serious: Yes (Hospitalization, Other)
  Sender: FDA-Public Use
  Company Number: US-ELI_LILLY_AND_COMPANY-US201210001508

PATIENT
  Sex: Female

DRUGS (1)
  1. FORTEO [Suspect]
     Dosage: 20 ug, qd
     Dates: start: 20120801

REACTIONS (3)
  - Hip arthroplasty [Unknown]
  - Injection site bruising [Unknown]
  - Injection site haemorrhage [Unknown]
